FAERS Safety Report 8399167-2 (Version None)
Quarter: 2012Q2

REPORT INFORMATION
  Report Type: 
  Country: None (occurrence: None)
  Receive Date: 20120531
  Receipt Date: 20120530
  Transmission Date: 20120825
  Serious: Yes (Life-Threatening, Hospitalization, Other)
  Sender: FDA-Public Use
  Company Number: PL-GLAXOSMITHKLINE-B0803182A

PATIENT
  Sex: Male
  Weight: 62 kg

DRUGS (13)
  1. ETOPOSIDE [Suspect]
     Indication: DIFFUSE LARGE B-CELL LYMPHOMA
     Dosage: 96MG CYCLIC
     Route: 042
     Dates: start: 20120516, end: 20120520
  2. CYTOSAR-U [Suspect]
     Indication: DIFFUSE LARGE B-CELL LYMPHOMA
     Dosage: 1600MG CYCLIC
     Route: 042
     Dates: start: 20120516, end: 20120517
  3. METRONIDAZOLE [Concomitant]
     Dosage: 500MG THREE TIMES PER DAY
     Route: 042
     Dates: start: 20120522, end: 20120529
  4. ZOKZID [Concomitant]
     Indication: PROPHYLAXIS
     Dosage: 30MCG PER DAY
     Route: 058
     Dates: start: 20120522
  5. MESNA [Suspect]
     Indication: DIFFUSE LARGE B-CELL LYMPHOMA
     Dosage: 128MG CYCLIC
     Route: 042
     Dates: start: 20120516, end: 20120520
  6. OFATUMUMAB [Suspect]
     Indication: DIFFUSE LARGE B-CELL LYMPHOMA
     Dosage: 1000MG CYCLIC
     Route: 042
     Dates: start: 20120516
  7. 5% GLUCOSE [Concomitant]
     Indication: PROPHYLAXIS
     Dosage: 500ML TWICE PER DAY
     Route: 042
     Dates: start: 20120516
  8. FUROSEMIDE [Concomitant]
     Indication: FLUID RETENTION
     Dosage: 10MG TWICE PER DAY
     Route: 042
     Dates: start: 20120521, end: 20120522
  9. IFOSFAMIDE [Suspect]
     Indication: DIFFUSE LARGE B-CELL LYMPHOMA
     Dosage: 1600MG CYCLIC
     Route: 042
     Dates: start: 20120516, end: 20120520
  10. DIFLUCAN [Concomitant]
     Indication: PROPHYLAXIS
     Dosage: 100MG PER DAY
     Route: 042
     Dates: start: 20120525, end: 20120528
  11. SODIUM CHLORIDE 0.9% [Concomitant]
     Indication: PROPHYLAXIS
     Dosage: 500ML TWICE PER DAY
     Route: 042
     Dates: start: 20120508
  12. MEROPENEM [Concomitant]
     Indication: PROPHYLAXIS
     Dosage: 1G THREE TIMES PER DAY
     Route: 042
     Dates: start: 20120525, end: 20120529
  13. ALBUMINAR-20 [Concomitant]
     Dosage: 100ML PER DAY
     Route: 042
     Dates: start: 20120521, end: 20120524

REACTIONS (3)
  - ALTERED STATE OF CONSCIOUSNESS [None]
  - PNEUMONIA [None]
  - CIRCULATORY COLLAPSE [None]
